FAERS Safety Report 9372373 (Version 5)
Quarter: 2014Q3

REPORT INFORMATION
  Report Type: Spontaneous
  Country: US (occurrence: US)
  Receive Date: 20130627
  Receipt Date: 20140801
  Transmission Date: 20150326
  Serious: Yes (Other)
  Sender: FDA-Public Use
  Company Number: US-ASTRAZENECA-2013SE48004

PATIENT
  Age: 726 Month
  Sex: Female
  Weight: 74.8 kg

DRUGS (43)
  1. TOPROL XL [Suspect]
     Active Substance: METOPROLOL SUCCINATE
     Indication: ISCHAEMIA
     Route: 048
     Dates: start: 20130611, end: 20130623
  2. TOPROL XL [Suspect]
     Active Substance: METOPROLOL SUCCINATE
     Indication: ANGINA UNSTABLE
     Route: 048
     Dates: start: 20130625
  3. TOPROL XL [Suspect]
     Active Substance: METOPROLOL SUCCINATE
     Indication: ANGINA PECTORIS
     Route: 048
     Dates: start: 20130625
  4. TOPROL XL [Suspect]
     Active Substance: METOPROLOL SUCCINATE
     Indication: ANGINA UNSTABLE
     Route: 048
     Dates: start: 2013
  5. TOPROL XL [Suspect]
     Active Substance: METOPROLOL SUCCINATE
     Indication: CARDIOVASCULAR DISORDER
     Route: 048
     Dates: start: 2013
  6. ATENOLOL. [Suspect]
     Active Substance: ATENOLOL
     Indication: CARDIOVASCULAR DISORDER
     Route: 048
     Dates: start: 20130524, end: 20130524
  7. TOPROL XL [Suspect]
     Active Substance: METOPROLOL SUCCINATE
     Indication: ANGINA PECTORIS
     Route: 048
     Dates: start: 20130611, end: 20130623
  8. TOPROL XL [Suspect]
     Active Substance: METOPROLOL SUCCINATE
     Indication: CARDIOVASCULAR DISORDER
     Route: 048
     Dates: start: 20130625
  9. TOPROL XL [Suspect]
     Active Substance: METOPROLOL SUCCINATE
     Indication: ANGINA PECTORIS
     Route: 048
     Dates: start: 201002, end: 201010
  10. TOPROL XL [Suspect]
     Active Substance: METOPROLOL SUCCINATE
     Indication: ANGINA UNSTABLE
     Route: 048
     Dates: end: 201407
  11. ATENOLOL. [Suspect]
     Active Substance: ATENOLOL
     Indication: ANGINA UNSTABLE
     Route: 048
     Dates: start: 20130524, end: 20130524
  12. NEXIUM [Suspect]
     Active Substance: ESOMEPRAZOLE MAGNESIUM
     Indication: GASTROOESOPHAGEAL REFLUX DISEASE
     Route: 048
     Dates: start: 20140404
  13. NEXIUM [Suspect]
     Active Substance: ESOMEPRAZOLE MAGNESIUM
     Indication: GASTROOESOPHAGEAL REFLUX DISEASE
     Route: 048
     Dates: start: 20140404, end: 20140412
  14. ASPIRIN. [Concomitant]
     Active Substance: ASPIRIN
     Indication: FAMILIAL RISK FACTOR
     Dosage: 325 MG EVERY 3 TO 6 DAYS PER WEEKS
     Route: 048
  15. TOPROL XL [Suspect]
     Active Substance: METOPROLOL SUCCINATE
     Indication: HYPERTENSION
     Route: 048
     Dates: start: 20130611, end: 20130623
  16. TOPROL XL [Suspect]
     Active Substance: METOPROLOL SUCCINATE
     Indication: ANGINA UNSTABLE
     Route: 048
     Dates: start: 20130611, end: 20130623
  17. TOPROL XL [Suspect]
     Active Substance: METOPROLOL SUCCINATE
     Indication: HYPERTENSION
     Route: 048
     Dates: start: 201002, end: 201010
  18. TOPROL XL [Suspect]
     Active Substance: METOPROLOL SUCCINATE
     Indication: CARDIOVASCULAR DISORDER
     Route: 048
     Dates: start: 201002, end: 201010
  19. TOPROL XL [Suspect]
     Active Substance: METOPROLOL SUCCINATE
     Indication: HYPERTENSION
     Route: 048
     Dates: start: 2013
  20. TOPROL XL [Suspect]
     Active Substance: METOPROLOL SUCCINATE
     Indication: ANGINA PECTORIS
     Route: 048
     Dates: start: 2013
  21. TOPROL XL [Suspect]
     Active Substance: METOPROLOL SUCCINATE
     Indication: ANGINA PECTORIS
     Route: 048
     Dates: end: 201407
  22. VALIUM [Concomitant]
     Active Substance: DIAZEPAM
     Indication: ANXIETY
     Route: 048
     Dates: start: 1999
  23. VALIUM [Concomitant]
     Active Substance: DIAZEPAM
     Indication: COSTOCHONDRITIS
     Dosage: 5 MG, AS REQUIRED SPLIT INTO QUARTERS
  24. TOPROL XL [Suspect]
     Active Substance: METOPROLOL SUCCINATE
     Indication: ISCHAEMIA
     Route: 048
     Dates: start: 20130625
  25. TOPROL XL [Suspect]
     Active Substance: METOPROLOL SUCCINATE
     Indication: HYPERTENSION
     Route: 048
     Dates: end: 201407
  26. TOPROL XL [Suspect]
     Active Substance: METOPROLOL SUCCINATE
     Indication: HYPERTENSION
     Route: 048
     Dates: start: 201305
  27. TOPROL XL [Suspect]
     Active Substance: METOPROLOL SUCCINATE
     Indication: ISCHAEMIA
     Route: 048
     Dates: start: 201305
  28. TOPROL XL [Suspect]
     Active Substance: METOPROLOL SUCCINATE
     Indication: ANGINA UNSTABLE
     Route: 048
     Dates: start: 201305
  29. TOPROL XL [Suspect]
     Active Substance: METOPROLOL SUCCINATE
     Indication: ANGINA PECTORIS
     Route: 048
     Dates: start: 201305
  30. TOPROL XL [Suspect]
     Active Substance: METOPROLOL SUCCINATE
     Indication: ISCHAEMIA
     Route: 048
     Dates: start: 201002, end: 201010
  31. TOPROL XL [Suspect]
     Active Substance: METOPROLOL SUCCINATE
     Indication: ISCHAEMIA
     Route: 048
     Dates: start: 2013
  32. TOPROL XL [Suspect]
     Active Substance: METOPROLOL SUCCINATE
     Indication: ISCHAEMIA
     Route: 048
     Dates: end: 201407
  33. TOPROL XL [Suspect]
     Active Substance: METOPROLOL SUCCINATE
     Indication: CARDIOVASCULAR DISORDER
     Route: 048
     Dates: end: 201407
  34. NEXIUM [Suspect]
     Active Substance: ESOMEPRAZOLE MAGNESIUM
     Indication: GASTROOESOPHAGEAL REFLUX DISEASE
     Route: 048
     Dates: start: 20140404
  35. TOPROL XL [Suspect]
     Active Substance: METOPROLOL SUCCINATE
     Indication: HYPERTENSION
     Route: 048
     Dates: start: 20130625
  36. NEXIUM [Suspect]
     Active Substance: ESOMEPRAZOLE MAGNESIUM
     Indication: GASTROOESOPHAGEAL REFLUX DISEASE
     Route: 048
     Dates: start: 20140404, end: 20140412
  37. ASPIRIN. [Concomitant]
     Active Substance: ASPIRIN
     Indication: FAMILIAL RISK FACTOR
     Route: 048
     Dates: start: 201304
  38. ASPIRIN. [Concomitant]
     Active Substance: ASPIRIN
     Indication: FAMILIAL RISK FACTOR
     Route: 048
     Dates: start: 2010
  39. VALIUM [Concomitant]
     Active Substance: DIAZEPAM
     Indication: COSTOCHONDRITIS
     Route: 048
     Dates: start: 1999
  40. TOPROL XL [Suspect]
     Active Substance: METOPROLOL SUCCINATE
     Indication: CARDIOVASCULAR DISORDER
     Route: 048
     Dates: start: 20130611, end: 20130623
  41. TOPROL XL [Suspect]
     Active Substance: METOPROLOL SUCCINATE
     Indication: CARDIOVASCULAR DISORDER
     Route: 048
     Dates: start: 201305
  42. TOPROL XL [Suspect]
     Active Substance: METOPROLOL SUCCINATE
     Indication: ANGINA UNSTABLE
     Route: 048
     Dates: start: 201002, end: 201010
  43. VALIUM [Concomitant]
     Active Substance: DIAZEPAM
     Indication: ANXIETY
     Dosage: 5 MG, AS REQUIRED SPLIT INTO QUARTERS

REACTIONS (36)
  - Memory impairment [Not Recovered/Not Resolved]
  - Diarrhoea [Not Recovered/Not Resolved]
  - Feeling abnormal [Not Recovered/Not Resolved]
  - Adverse drug reaction [Unknown]
  - Gastrointestinal sounds abnormal [Unknown]
  - Gastrooesophageal reflux disease [Unknown]
  - Hypotension [Not Recovered/Not Resolved]
  - Aphasia [Unknown]
  - Abdominal distension [Unknown]
  - Ventricular extrasystoles [Recovered/Resolved]
  - Peripheral swelling [Unknown]
  - Arrhythmia [Not Recovered/Not Resolved]
  - Drug dose omission [Unknown]
  - Supraventricular extrasystoles [Unknown]
  - Hearing impaired [Not Recovered/Not Resolved]
  - Malabsorption [Unknown]
  - Flatulence [Unknown]
  - Hunger [Recovered/Resolved]
  - Raynaud^s phenomenon [Not Recovered/Not Resolved]
  - Chest discomfort [Unknown]
  - Vision blurred [Not Recovered/Not Resolved]
  - Cardiac discomfort [Unknown]
  - Bowel movement irregularity [Unknown]
  - General physical health deterioration [Unknown]
  - Dyspnoea [Recovered/Resolved]
  - Hyperhidrosis [Unknown]
  - Feeling abnormal [Unknown]
  - Food aversion [Unknown]
  - Dizziness [Not Recovered/Not Resolved]
  - Intentional product misuse [Unknown]
  - Hypoaesthesia [Not Recovered/Not Resolved]
  - Flatulence [Not Recovered/Not Resolved]
  - Paraesthesia [Unknown]
  - Nausea [Unknown]
  - Fatigue [Unknown]
  - Weight increased [Unknown]

NARRATIVE: CASE EVENT DATE: 201004
